FAERS Safety Report 7931932-5 (Version None)
Quarter: 2011Q4

REPORT INFORMATION
  Report Type: 
  Country: None (occurrence: None)
  Receive Date: 20111121
  Receipt Date: 20111111
  Transmission Date: 20120403
  Serious: Yes (Other)
  Sender: FDA-Public Use
  Company Number: US-ASTRAZENECA-2010SE26730

PATIENT
  Age: 76 Year
  Sex: Female

DRUGS (3)
  1. PRILOSEC [Suspect]
     Route: 048
  2. NEXIUM [Suspect]
     Route: 048
  3. NEXIUM [Suspect]
     Route: 048

REACTIONS (16)
  - PELVIC FRACTURE [None]
  - VOMITING [None]
  - FLATULENCE [None]
  - WRONG DRUG ADMINISTERED [None]
  - CARDIAC DISORDER [None]
  - HERNIA [None]
  - DRUG EFFECT DECREASED [None]
  - GAIT DISTURBANCE [None]
  - NAUSEA [None]
  - SPINAL FRACTURE [None]
  - BACK PAIN [None]
  - GENERAL PHYSICAL HEALTH DETERIORATION [None]
  - ROAD TRAFFIC ACCIDENT [None]
  - SCOLIOSIS [None]
  - GASTROOESOPHAGEAL REFLUX DISEASE [None]
  - DRUG DOSE OMISSION [None]
